FAERS Safety Report 10255256 (Version 1)
Quarter: 2014Q2

REPORT INFORMATION
  Report Type: Spontaneous
  Country: US (occurrence: US)
  Receive Date: 20140624
  Receipt Date: 20140624
  Transmission Date: 20141212
  Serious: Yes (Other)
  Sender: FDA-Public Use
  Company Number: PHEH2014US012634

PATIENT
  Sex: Female

DRUGS (10)
  1. RECLAST [Suspect]
     Indication: OSTEOPOROSIS
     Dosage: 5 MG, Q12MO
     Route: 042
  2. VISTARIL [Concomitant]
     Dosage: 25 MG, QID
     Route: 048
  3. SYMBICORT [Concomitant]
     Dosage: 160 UG, UNK
  4. DESOWEN [Concomitant]
  5. LEVOTHYROXINE SODIUM [Concomitant]
     Dosage: 50 UG, UNK
  6. ASPIRIN [Concomitant]
     Dosage: 81 MG, UNK
  7. PANTOPRAZOLE SODIUM [Concomitant]
     Dosage: 40 MG, UNK
  8. PAROXETINE HCL [Concomitant]
     Dosage: 40 MG, UNK
  9. SPIRIVA [Concomitant]
     Dosage: 18 UG, UNK
  10. ALPRAZOLAM [Concomitant]
     Dosage: 0.5 MG, UNK

REACTIONS (15)
  - Jaw fracture [Unknown]
  - Bone swelling [Unknown]
  - Chronic obstructive pulmonary disease [Unknown]
  - Swelling [Unknown]
  - Pulmonary mass [Unknown]
  - Hypertension [Unknown]
  - Essential hypertension [Unknown]
  - Hyperlipidaemia [Unknown]
  - Urinary incontinence [Unknown]
  - Gastrooesophageal reflux disease [Unknown]
  - Oesophageal stenosis [Unknown]
  - Hypothyroidism [Unknown]
  - Anxiety [Unknown]
  - Depression [Unknown]
  - Seborrhoeic dermatitis [Unknown]
